FAERS Safety Report 6114738-1 (Version None)
Quarter: 2009Q1

REPORT INFORMATION
  Report Type: 
  Country: None (occurrence: None)
  Receive Date: 20090313
  Receipt Date: 20090310
  Transmission Date: 20090719
  Serious: Yes (Other)
  Sender: FDA-Public Use
  Company Number: GB-JNJFOC-20090301089

PATIENT
  Sex: Male
  Weight: 72.8 kg

DRUGS (2)
  1. INFLIXIMAB [Suspect]
     Indication: RENAL CELL CARCINOMA
     Route: 042
  2. SORAFENIB [Suspect]
     Indication: RENAL CELL CARCINOMA
     Route: 048

REACTIONS (2)
  - JOINT SWELLING [None]
  - RASH GENERALISED [None]
